FAERS Safety Report 9075462 (Version 1)
Quarter: 2013Q1

REPORT INFORMATION
  Report Type: Report from Study
  Country: US (occurrence: US)
  Receive Date: 20130129
  Receipt Date: 20130129
  Transmission Date: 20140127
  Serious: No
  Sender: FDA-Public Use
  Company Number: US-ABBOTT-12P-163-0928233-00

PATIENT
  Age: 54 None
  Sex: Male
  Weight: 106.69 kg

DRUGS (12)
  1. HUMIRA 40 MG/0.8 ML PEN [Suspect]
     Indication: CROHN^S DISEASE
     Dosage: ONCE
     Dates: start: 20120323, end: 20120323
  2. HUMIRA 40 MG/0.8 ML PEN [Suspect]
     Dosage: ONCE
     Dates: start: 20120405, end: 20120405
  3. AZATHIOPRINE [Concomitant]
     Indication: CROHN^S DISEASE
  4. ENTOCORT [Concomitant]
     Indication: CROHN^S DISEASE
  5. FOLIC ACID [Concomitant]
     Indication: PRODUCT USED FOR UNKNOWN INDICATION
  6. B-12 [Concomitant]
     Indication: PRODUCT USED FOR UNKNOWN INDICATION
     Route: 050
  7. CALCIUM [Concomitant]
     Indication: PRODUCT USED FOR UNKNOWN INDICATION
  8. VITAMIN D [Concomitant]
     Indication: PRODUCT USED FOR UNKNOWN INDICATION
  9. PROBIOTIC [Concomitant]
     Indication: PRODUCT USED FOR UNKNOWN INDICATION
  10. MULTIVITAMIN [Concomitant]
     Indication: PRODUCT USED FOR UNKNOWN INDICATION
  11. FISH OIL [Concomitant]
     Indication: PRODUCT USED FOR UNKNOWN INDICATION
  12. ALLEGRA [Concomitant]
     Indication: HYPERSENSITIVITY

REACTIONS (72)
  - Headache [Recovered/Resolved]
  - Flatulence [Unknown]
  - Frequent bowel movements [Unknown]
  - Tremor [Unknown]
  - Injection site pain [Unknown]
  - Injection site erythema [Unknown]
  - Injection site bruising [Unknown]
  - Tinnitus [Unknown]
  - Tinnitus [Unknown]
  - Hypoaesthesia [Unknown]
  - Feeling hot [Unknown]
  - Fatigue [Unknown]
  - Asthenia [Unknown]
  - Fatigue [Unknown]
  - Frequent bowel movements [Unknown]
  - Hyperhidrosis [Unknown]
  - Feeling hot [Unknown]
  - Fatigue [Unknown]
  - Fatigue [Unknown]
  - Pyrexia [Unknown]
  - Body temperature decreased [Unknown]
  - Gait disturbance [Unknown]
  - Pain [Unknown]
  - Listless [Unknown]
  - Abdominal distension [Unknown]
  - Abdominal discomfort [Unknown]
  - Fatigue [Unknown]
  - Fatigue [Unknown]
  - Abdominal distension [Unknown]
  - Fatigue [Unknown]
  - Tenderness [Unknown]
  - Abdominal distension [Unknown]
  - Fatigue [Unknown]
  - Fatigue [Unknown]
  - Abdominal distension [Unknown]
  - Frequent bowel movements [Not Recovered/Not Resolved]
  - Flatulence [Unknown]
  - Flatulence [Unknown]
  - Feeling abnormal [Unknown]
  - Fatigue [Unknown]
  - Feeling abnormal [Unknown]
  - Poor quality sleep [Unknown]
  - Injection site bruising [Unknown]
  - Lymphadenopathy [Unknown]
  - Tenderness [Unknown]
  - Dizziness [Unknown]
  - Vertigo [Unknown]
  - Fatigue [Unknown]
  - Mass [Unknown]
  - Flatulence [Unknown]
  - Mass [Unknown]
  - Feeling abnormal [Unknown]
  - Weight decreased [Unknown]
  - Feeling hot [Unknown]
  - Sticky skin [Unknown]
  - Sticky skin [Unknown]
  - Injection site pain [Unknown]
  - Injection site erythema [Unknown]
  - Injection site erythema [Unknown]
  - Fatigue [Unknown]
  - Injection site erythema [Unknown]
  - Injection site pain [Unknown]
  - Injection site pruritus [Unknown]
  - Fatigue [Unknown]
  - Fatigue [Unknown]
  - Fatigue [Unknown]
  - Insomnia [Unknown]
  - Frequent bowel movements [Unknown]
  - Pollakiuria [Unknown]
  - Feeling abnormal [Unknown]
  - Faecal volume increased [Unknown]
  - Fatigue [Unknown]
